FAERS Safety Report 10408920 (Version 1)
Quarter: 2014Q3

REPORT INFORMATION
  Report Type: Spontaneous
  Country: US (occurrence: None)
  Receive Date: 20140825
  Receipt Date: 20140825
  Transmission Date: 20150326
  Serious: No
  Sender: FDA-Public Use
  Company Number: None

PATIENT
  Age: 74 Year
  Sex: Male
  Weight: 86.18 kg

DRUGS (1)
  1. ZYTIGA [Suspect]
     Active Substance: ABIRATERONE ACETATE
     Indication: PROSTATE CANCER
     Dosage: 250 MG ORAL 4 TAB ONCE DAILY
     Route: 048
     Dates: start: 20140630, end: 20140815

REACTIONS (4)
  - Prostatic specific antigen increased [None]
  - Hot flush [None]
  - Drug ineffective [None]
  - Flushing [None]

NARRATIVE: CASE EVENT DATE: 20140815
